FAERS Safety Report 19983435 (Version 1)
Quarter: 2021Q4

REPORT INFORMATION
  Report Type: Spontaneous
  Country: BG (occurrence: BG)
  Receive Date: 20211021
  Receipt Date: 20211021
  Transmission Date: 20220303
  Serious: Yes (Death, Life-Threatening, Hospitalization, Other)
  Sender: FDA-Public Use
  Company Number: BG-MLMSERVICE-20211006-3151655-1

PATIENT
  Age: 42 Year
  Sex: Male

DRUGS (6)
  1. CELEBREX [Suspect]
     Active Substance: CELECOXIB
     Indication: Thrombocytopenia
     Dosage: 200 MG, 1X/DAY
     Dates: start: 2019
  2. CELEBREX [Suspect]
     Active Substance: CELECOXIB
     Indication: Spondylitis
  3. PIROXICAM [Suspect]
     Active Substance: PIROXICAM
     Indication: Thrombocytopenia
     Dosage: 20 MG, 1X/DAY
     Dates: start: 2019
  4. PIROXICAM [Suspect]
     Active Substance: PIROXICAM
     Indication: Spinal osteoarthritis
  5. SULFASALAZINE [Concomitant]
     Active Substance: SULFASALAZINE
     Indication: Thrombocytopenia
     Dosage: 1000 MG, 1X/DAY
     Dates: start: 2019
  6. SULFASALAZINE [Concomitant]
     Active Substance: SULFASALAZINE
     Indication: Spinal osteoarthritis

REACTIONS (4)
  - Hepatitis fulminant [Fatal]
  - Hepatic encephalopathy [Fatal]
  - Acute hepatic failure [Fatal]
  - Multiple organ dysfunction syndrome [Fatal]

NARRATIVE: CASE EVENT DATE: 20190601
